FAERS Safety Report 10034073 (Version 1)
Quarter: 2014Q1

REPORT INFORMATION
  Report Type: Spontaneous
  Country: US (occurrence: None)
  Receive Date: 20140324
  Receipt Date: 20140324
  Transmission Date: 20141002
  Serious: Yes (Life-Threatening, Hospitalization, Disabling)
  Sender: FDA-Public Use
  Company Number: None

PATIENT
  Age: 36 Year
  Sex: Male
  Weight: 104.33 kg

DRUGS (2)
  1. CIPROFLOXACIN [Suspect]
     Indication: GASTROINTESTINAL INFECTION
     Dosage: 2 TWICE DAILY TAKEN BY MOUTH
     Route: 048
     Dates: start: 20130813, end: 20130816
  2. CIPROFLOXACIN [Suspect]
     Indication: DIVERTICULITIS
     Dosage: 2 TWICE DAILY TAKEN BY MOUTH
     Route: 048
     Dates: start: 20130813, end: 20130816

REACTIONS (6)
  - Muscle spasms [None]
  - Arthralgia [None]
  - Arthritis [None]
  - Muscle spasms [None]
  - Abasia [None]
  - Burning sensation [None]
